FAERS Safety Report 13883712 (Version 1)
Quarter: 2017Q3

REPORT INFORMATION
  Report Type: Report from Study
  Country: BE (occurrence: BE)
  Receive Date: 20170819
  Receipt Date: 20170819
  Transmission Date: 20171127
  Serious: Yes (Other)
  Sender: FDA-Public Use
  Company Number: BE-EMD SERONO-8120984

PATIENT
  Age: 64 Year
  Sex: Female

DRUGS (2)
  1. REBIF [Suspect]
     Active Substance: INTERFERON BETA-1A
     Indication: MULTIPLE SCLEROSIS
     Route: 058
     Dates: start: 20100511, end: 20160628
  2. REBIF [Suspect]
     Active Substance: INTERFERON BETA-1A
     Dosage: RESTARTED ON AN UNKNOWN DATE AND DISCONTINUED
     Route: 058
     Dates: end: 20170201

REACTIONS (3)
  - Angioedema [Not Recovered/Not Resolved]
  - Urticaria [Not Recovered/Not Resolved]
  - Osteoarthritis [Not Recovered/Not Resolved]

NARRATIVE: CASE EVENT DATE: 201606
